FAERS Safety Report 20522860 (Version 1)
Quarter: 2022Q1

REPORT INFORMATION
  Report Type: Spontaneous
  Country: US (occurrence: US)
  Receive Date: 20220226
  Receipt Date: 20220226
  Transmission Date: 20220423
  Serious: Yes (Other)
  Sender: FDA-Public Use
  Company Number: US-NOVARTISPH-NVSC2022US044905

PATIENT
  Age: 57 Year
  Sex: Female

DRUGS (3)
  1. RANITIDINE [Suspect]
     Active Substance: RANITIDINE
     Indication: Gastrooesophageal reflux disease
     Dosage: 150 MG,300 MG,,OTHER,150MG AT BED TIME (2 TABS AT NIGHT)
     Route: 048
     Dates: start: 200701, end: 201908
  2. RANITIDINE [Suspect]
     Active Substance: RANITIDINE
     Indication: Gastrooesophageal reflux disease
     Dosage: 150 MG,300 MG,,OTHER,150MG AT BED TIME (2 TABS AT NIGHT)
     Route: 048
     Dates: start: 200701, end: 201908
  3. RANITIDINE [Suspect]
     Active Substance: RANITIDINE
     Indication: Gastrooesophageal reflux disease
     Dosage: ,,,,OTHER,OTHER,150MG TABS X2 AT BED TIME
     Route: 048
     Dates: start: 200701, end: 201908

REACTIONS (4)
  - Renal cancer [Unknown]
  - Incorrect dose administered [Unknown]
  - Inappropriate schedule of product administration [Unknown]
  - Product use in unapproved indication [Unknown]

NARRATIVE: CASE EVENT DATE: 20190101
